FAERS Safety Report 17542943 (Version 2)
Quarter: 2020Q2

REPORT INFORMATION
  Report Type: Report from Study
  Country: DE (occurrence: DE)
  Receive Date: 20200316
  Receipt Date: 20200528
  Transmission Date: 20200713
  Serious: Yes (Hospitalization)
  Sender: FDA-Public Use
  Company Number: DE-ROCHE-2565536

PATIENT
  Age: 82 Year
  Sex: Male
  Weight: 78.8 kg

DRUGS (37)
  1. KALINOR RETARD P [Concomitant]
     Active Substance: POTASSIUM CHLORIDE
     Indication: BLOOD POTASSIUM DECREASED
     Route: 065
     Dates: start: 20191228, end: 20200103
  2. TAVEGIL [CLEMASTINE] [Concomitant]
     Active Substance: CLEMASTINE
     Route: 042
     Dates: start: 20200303, end: 20200303
  3. GLYCYLPRESSIN [Concomitant]
     Route: 065
     Dates: start: 20200103, end: 20200106
  4. TORASEMIDE [Concomitant]
     Active Substance: TORSEMIDE
  5. PREDNISOLONE. [Concomitant]
     Active Substance: PREDNISOLONE
     Route: 042
     Dates: start: 20200115, end: 20200115
  6. PARACETAMOL [Concomitant]
     Active Substance: ACETAMINOPHEN
     Route: 048
     Dates: start: 20200130, end: 20200130
  7. AMLODIPINE [Concomitant]
     Active Substance: AMLODIPINE BESYLATE
     Indication: HYPERTENSION
     Route: 065
  8. BISOHEXAL [Concomitant]
     Active Substance: BISOPROLOL FUMARATE
     Indication: HYPERTENSION
  9. DEKRISTOL [Concomitant]
     Active Substance: CHOLECALCIFEROL
     Indication: VITAMIN D DEFICIENCY
  10. MERONEM [Concomitant]
     Active Substance: MEROPENEM
     Indication: INFECTION
     Route: 065
     Dates: start: 20200103, end: 20200104
  11. PARACETAMOL [Concomitant]
     Active Substance: ACETAMINOPHEN
     Indication: PREMEDICATION
     Route: 048
     Dates: start: 20191228, end: 20191228
  12. TAVEGIL [CLEMASTINE] [Concomitant]
     Active Substance: CLEMASTINE
     Indication: PREMEDICATION
     Route: 042
     Dates: start: 20191228, end: 20191229
  13. BENDAMUSTINE [Suspect]
     Active Substance: BENDAMUSTINE
     Indication: B-CELL LYMPHOMA
     Dosage: ON 04/MAR/2020, HE RECEIVED MOSTE RECENT DOSE OF BENDAMUSTINE PRIOR TO AE/SAE ONSET.?ON 02/APR/2020,
     Route: 042
     Dates: start: 20191228
  14. FUROSEMIDE. [Concomitant]
     Active Substance: FUROSEMIDE
     Indication: CHRONIC KIDNEY DISEASE
     Route: 065
     Dates: start: 20200101, end: 20200102
  15. ACICLOVIR [Concomitant]
     Active Substance: ACYCLOVIR
     Indication: INFECTION PROPHYLAXIS
     Route: 065
     Dates: start: 20191219
  16. CALCETAT [Concomitant]
     Indication: CHRONIC KIDNEY DISEASE
     Route: 065
     Dates: start: 20191219
  17. VALSARTAN. [Concomitant]
     Active Substance: VALSARTAN
     Indication: HYPERTENSION
  18. TAMSULOSIN [Concomitant]
     Active Substance: TAMSULOSIN
     Indication: BENIGN PROSTATIC HYPERPLASIA
  19. ALLOPURINOL. [Concomitant]
     Active Substance: ALLOPURINOL
     Indication: BLOOD URIC ACID INCREASED
     Route: 065
     Dates: start: 201912, end: 20191231
  20. PANTOZOL [Concomitant]
     Active Substance: PANTOPRAZOLE SODIUM
     Route: 065
     Dates: start: 20191219
  21. COTRIM FORTE [Concomitant]
     Active Substance: SULFAMETHOXAZOLE\TRIMETHOPRIM
     Indication: INFECTION PROPHYLAXIS
  22. CLEXANE [Concomitant]
     Active Substance: ENOXAPARIN SODIUM
     Route: 065
     Dates: start: 201912
  23. MERONEM [Concomitant]
     Active Substance: MEROPENEM
     Route: 065
     Dates: start: 20200105, end: 20200110
  24. VANCOMYCIN [Concomitant]
     Active Substance: VANCOMYCIN
     Route: 065
     Dates: start: 20200106, end: 20200109
  25. BICANORM [Concomitant]
     Active Substance: SODIUM BICARBONATE
     Indication: ACIDOSIS
     Route: 065
     Dates: start: 20200108, end: 20200116
  26. TAVEGIL [CLEMASTINE] [Concomitant]
     Active Substance: CLEMASTINE
     Route: 042
     Dates: start: 20200130, end: 20200130
  27. NORFLOXACIN [Concomitant]
     Active Substance: NORFLOXACIN
     Indication: INFECTION
     Route: 065
     Dates: start: 20200111, end: 20200111
  28. PREDNISOLONE. [Concomitant]
     Active Substance: PREDNISOLONE
     Indication: PREMEDICATION
     Route: 042
     Dates: start: 20191228, end: 20191228
  29. PREDNISOLONE. [Concomitant]
     Active Substance: PREDNISOLONE
     Route: 042
     Dates: start: 20200130, end: 20200130
  30. PREDNISOLONE. [Concomitant]
     Active Substance: PREDNISOLONE
     Route: 042
     Dates: start: 20200303, end: 20200303
  31. TAVEGIL [CLEMASTINE] [Concomitant]
     Active Substance: CLEMASTINE
     Route: 042
     Dates: start: 20200108, end: 20200108
  32. OBINUTUZUMAB. [Suspect]
     Active Substance: OBINUTUZUMAB
     Indication: B-CELL LYMPHOMA
     Dosage: ON 03/MAR/2020, HE RECEIVED RECENT DOSE OF OBINUTUZUMAB PRIOR TO AE/SAE ONSET.?ON 31/MAR/2020, HE RE
     Route: 042
     Dates: start: 20191228
  33. FASTURTEC [Concomitant]
     Active Substance: RASBURICASE
     Indication: CHRONIC KIDNEY DISEASE
     Route: 065
     Dates: start: 20200104, end: 20200104
  34. HUMAN ALBUMIN [Concomitant]
     Active Substance: ALBUMIN HUMAN
     Indication: HYPOALBUMINAEMIA
     Route: 065
     Dates: start: 20200103, end: 20200104
  35. METRONIDAZOLE. [Concomitant]
     Active Substance: METRONIDAZOLE
     Indication: INFECTION
     Route: 065
     Dates: start: 20191223, end: 20200113
  36. PREDNISOLONE. [Concomitant]
     Active Substance: PREDNISOLONE
     Route: 042
     Dates: start: 20200108, end: 20200108
  37. PARACETAMOL [Concomitant]
     Active Substance: ACETAMINOPHEN
     Route: 048
     Dates: start: 20200108, end: 20200108

REACTIONS (2)
  - Influenza [Recovered/Resolved]
  - Infection [Not Recovered/Not Resolved]

NARRATIVE: CASE EVENT DATE: 20200305
